FAERS Safety Report 11519655 (Version 1)
Quarter: 2015Q3

REPORT INFORMATION
  Report Type: Spontaneous
  Country: US (occurrence: US)
  Receive Date: 20150918
  Receipt Date: 20150918
  Transmission Date: 20151125
  Serious: No
  Sender: FDA-Public Use
  Company Number: US-GLENMARK GENERICS INC.-2014GMK011983

PATIENT
  Age: 29 Year
  Sex: Female

DRUGS (11)
  1. NORETHINDRONE ACETATE TABLETS [Suspect]
     Active Substance: NORETHINDRONE ACETATE
     Dosage: 5 MG, QD
     Dates: start: 20141031
  2. IBUPROFEN. [Concomitant]
     Active Substance: IBUPROFEN
     Dosage: 800 MG, PRN
  3. PHILITH [Concomitant]
     Active Substance: ETHINYL ESTRADIOL\NORETHINDRONE
     Dosage: 0.4/0.035 MG, QD
  4. ADDERALL [Concomitant]
     Active Substance: AMPHETAMINE ASPARTATE\AMPHETAMINE SULFATE\DEXTROAMPHETAMINE SACCHARATE\DEXTROAMPHETAMINE SULFATE
     Dosage: 25 MG, QD
  5. TRAZADOL [Concomitant]
     Dosage: 50 MG, UNK
  6. FLOVENT [Concomitant]
     Active Substance: FLUTICASONE PROPIONATE
     Indication: ASTHMA
     Dosage: UNK, QD
  7. PROVENTIL                          /00139501/ [Concomitant]
     Indication: ASTHMA
     Dosage: UNK, PRN
  8. LUPRON [Suspect]
     Active Substance: LEUPROLIDE ACETATE
     Dosage: 11.25 MG, EVERY 3 MONTHS
     Dates: start: 20141031
  9. LYRICA [Concomitant]
     Active Substance: PREGABALIN
     Dosage: 225 MG, TID
  10. TRAZADOL [Concomitant]
     Indication: INSOMNIA
     Dosage: 25 MG, PRN
  11. VICODIN [Concomitant]
     Active Substance: ACETAMINOPHEN\HYDROCODONE BITARTRATE
     Dosage: 300MG/ 5MG, PRN

REACTIONS (11)
  - Panic attack [Not Recovered/Not Resolved]
  - Depression [Not Recovered/Not Resolved]
  - Crying [Not Recovered/Not Resolved]
  - Hot flush [Not Recovered/Not Resolved]
  - Migraine [Recovering/Resolving]
  - Emotional disorder [Not Recovered/Not Resolved]
  - Endometriosis [Not Recovered/Not Resolved]
  - Night sweats [Not Recovered/Not Resolved]
  - Anxiety [Not Recovered/Not Resolved]
  - Dysuria [Recovered/Resolved]
  - Mood swings [Recovering/Resolving]

NARRATIVE: CASE EVENT DATE: 20141031
